FAERS Safety Report 8399774-7 (Version None)
Quarter: 2012Q1

REPORT INFORMATION
  Report Type: 
  Country: None (occurrence: None)
  Receive Date: 20120323
  Receipt Date: 20110720
  Transmission Date: 20120608
  Serious: Yes (Hospitalization)
  Sender: FDA-Public Use
  Company Number: 163-21880-11072516

PATIENT
  Age: 79 Year
  Sex: Female

DRUGS (7)
  1. DIFLUCAN [Concomitant]
  2. REVLIMID [Suspect]
     Indication: MULTIPLE MYELOMA
     Dosage: 25 MG, DAILY X 21 DAYS, PO
     Route: 048
     Dates: start: 20110309
  3. XANAX [Concomitant]
  4. COMPAZINE (PROCHLORPERAZINE EDISYLATE) (UNKNOWN) [Concomitant]
  5. ASPIRIN [Concomitant]
  6. DECADRON [Concomitant]
  7. ULTRACET (ULTRACET) (UNKNOWN) [Concomitant]

REACTIONS (1)
  - PNEUMONIA [None]
